FAERS Safety Report 6784898-8 (Version None)
Quarter: 2010Q2

REPORT INFORMATION
  Report Type: 
  Country: None (occurrence: None)
  Receive Date: 20100622
  Receipt Date: 20100618
  Transmission Date: 20101027
  Serious: Yes (Life-Threatening, Other)
  Sender: FDA-Public Use
  Company Number: US-ASTRAZENECA-2010SE25841

PATIENT
  Age: 16033 Day
  Sex: Female
  Weight: 67.1 kg

DRUGS (3)
  1. SEROQUEL XR [Suspect]
     Indication: DEPRESSION
     Route: 048
     Dates: start: 20100524, end: 20100527
  2. CYMBALTA [Concomitant]
     Indication: DEPRESSION
     Route: 048
     Dates: start: 20091010
  3. XANAX [Concomitant]
     Indication: ANXIETY
     Route: 048
     Dates: start: 20090904

REACTIONS (2)
  - DEPRESSION [None]
  - SUICIDAL IDEATION [None]
